FAERS Safety Report 9686442 (Version 2)
Quarter: 2013Q4

REPORT INFORMATION
  Report Type: Spontaneous
  Country: IL (occurrence: IL)
  Receive Date: 20131113
  Receipt Date: 20131113
  Transmission Date: 20140711
  Serious: Yes (Hospitalization, Other)
  Sender: FDA-Public Use
  Company Number: IL-JNJFOC-20131006685

PATIENT
  Age: 36 Year
  Sex: Female

DRUGS (2)
  1. SIMPONI [Suspect]
     Indication: RHEUMATOID ARTHRITIS
     Route: 058
     Dates: start: 201310
  2. SIMPONI [Suspect]
     Indication: RHEUMATOID ARTHRITIS
     Route: 058
     Dates: start: 20130711

REACTIONS (6)
  - Nausea [Unknown]
  - Renal disorder [Unknown]
  - Biopsy liver [Unknown]
  - Rheumatoid arthritis [Unknown]
  - Eye infection [Unknown]
  - Vomiting [Unknown]
